FAERS Safety Report 24755301 (Version 2)
Quarter: 2025Q4

REPORT INFORMATION
  Report Type: Spontaneous
  Country: US (occurrence: US)
  Receive Date: 20241219
  Receipt Date: 20251215
  Transmission Date: 20260117
  Serious: No
  Sender: BIOMARIN
  Company Number: US-SA-2024SA368290

PATIENT
  Age: 1 Year
  Sex: Male
  Weight: 14.51 kg

DRUGS (7)
  1. ALDURAZYME [Suspect]
     Active Substance: LARONIDASE
     Indication: Mucopolysaccharidosis I
     Dosage: 8.7 MG, QW
     Dates: start: 202408
  2. ALDURAZYME [Suspect]
     Active Substance: LARONIDASE
     Dosage: 11.6 MG, QW
  3. CHILDREN^S PAIN RELIEF [Concomitant]
     Active Substance: ACETAMINOPHEN
     Indication: Product used for unknown indication
  4. EPINEPHRINE [Concomitant]
     Active Substance: EPINEPHRINE
     Indication: Product used for unknown indication
  5. IBUPROFEN [Concomitant]
     Active Substance: IBUPROFEN
     Indication: Product used for unknown indication
  6. LIDOCAINE\PRILOCAINE [Concomitant]
     Active Substance: LIDOCAINE\PRILOCAINE
     Indication: Product used for unknown indication
  7. LIDOCAINE\PRILOCAINE [Concomitant]
     Active Substance: LIDOCAINE\PRILOCAINE
     Dosage: UNK

REACTIONS (2)
  - Weight decreased [Unknown]
  - Product dose omission issue [Unknown]

NARRATIVE: CASE EVENT DATE: 20240101
